FAERS Safety Report 15057966 (Version 3)
Quarter: 2018Q3

REPORT INFORMATION
  Report Type: Spontaneous
  Country: US (occurrence: US)
  Receive Date: 20180625
  Receipt Date: 20180801
  Transmission Date: 20181010
  Serious: Yes (Other)
  Sender: FDA-Public Use
  Company Number: US-MALLINCKRODT-T201802536

PATIENT
  Sex: Female
  Weight: 63 kg

DRUGS (1)
  1. FENTANYL CITRATE. [Suspect]
     Active Substance: FENTANYL CITRATE
     Indication: PAIN
     Dosage: 1600 ?G, PRN (AS NEEDED)
     Route: 065

REACTIONS (1)
  - Neoplasm malignant [Unknown]
